FAERS Safety Report 9081113 (Version 1)
Quarter: 2013Q1

REPORT INFORMATION
  Report Type: Report from Study
  Country: US (occurrence: US)
  Receive Date: 20130130
  Receipt Date: 20130130
  Transmission Date: 20140127
  Serious: No
  Sender: FDA-Public Use
  Company Number: US-ABBOTT-12P-163-0980262-00

PATIENT
  Sex: Female
  Weight: 81.72 kg

DRUGS (3)
  1. HUMIRA [Suspect]
     Indication: RHEUMATOID ARTHRITIS
     Dates: start: 201204
  2. HYDROCODONE  (NON-ABBOTT) [Concomitant]
     Indication: PAIN
  3. CLONAZAPAM (NON-ABBOTT) [Concomitant]
     Indication: ANXIETY

REACTIONS (4)
  - Fatigue [Not Recovered/Not Resolved]
  - Acarodermatitis [Recovered/Resolved]
  - Drug ineffective [Not Recovered/Not Resolved]
  - Inflammation [Not Recovered/Not Resolved]
